FAERS Safety Report 24171985 (Version 1)
Quarter: 2024Q3

REPORT INFORMATION
  Report Type: Spontaneous
  Country: US (occurrence: US)
  Receive Date: 20240805
  Receipt Date: 20240805
  Transmission Date: 20241017
  Serious: Yes (Hospitalization)
  Sender: NOVO NORDISK
  Company Number: US-NOVOPROD-1261757

PATIENT
  Age: 73 Year
  Sex: Female

DRUGS (1)
  1. OZEMPIC [Suspect]
     Active Substance: SEMAGLUTIDE
     Indication: Type 2 diabetes mellitus
     Dosage: 1 MG WEEKLY
     Route: 058
     Dates: start: 20240524, end: 20240715

REACTIONS (7)
  - Acute kidney injury [Recovering/Resolving]
  - Visual impairment [Unknown]
  - Urinary tract infection [Unknown]
  - Cerebral small vessel ischaemic disease [Unknown]
  - Blister [Unknown]
  - Decreased appetite [Unknown]
  - Weight decreased [Unknown]
